FAERS Safety Report 9114022 (Version 3)
Quarter: 2013Q3

REPORT INFORMATION
  Report Type: Spontaneous
  Country: US (occurrence: US)
  Receive Date: 20130208
  Receipt Date: 20130708
  Transmission Date: 20140515
  Serious: Yes (Hospitalization)
  Sender: FDA-Public Use
  Company Number: US-BRACCO-009157

PATIENT
  Age: 82 Year
  Sex: Female

DRUGS (1)
  1. PROHANCE [Suspect]
     Indication: DIAGNOSTIC PROCEDURE
     Route: 037
     Dates: start: 20130206, end: 20130206

REACTIONS (4)
  - Off label use [Recovered/Resolved]
  - Dyspnoea [Recovered/Resolved]
  - Convulsion [Recovered/Resolved]
  - Back pain [Recovered/Resolved]
